FAERS Safety Report 4265588-2 (Version None)
Quarter: 2004Q1

REPORT INFORMATION
  Report Type: 
  Country: None (occurrence: None)
  Receive Date: 20040107
  Receipt Date: 20040107
  Transmission Date: 20041129
  Serious: Yes (Life-Threatening)
  Sender: FDA-Public Use
  Company Number: None

PATIENT
  Age: 36 Year
  Sex: Female
  Weight: 58.0604 kg

DRUGS (2)
  1. VIOXX [Suspect]
     Indication: ANTIINFLAMMATORY THERAPY
     Dosage: 25 MG ONCE DAILY
     Dates: start: 20031205, end: 20031221
  2. VIOXX [Suspect]
     Indication: POSTOPERATIVE CARE
     Dosage: 25 MG ONCE DAILY
     Dates: start: 20031205, end: 20031221

REACTIONS (7)
  - ALOPECIA [None]
  - ANXIETY [None]
  - CHEST PAIN [None]
  - DYSPNOEA [None]
  - GINGIVAL BLEEDING [None]
  - HEART RATE INCREASED [None]
  - PAIN [None]
